FAERS Safety Report 8445225-3 (Version None)
Quarter: 2012Q2

REPORT INFORMATION
  Report Type: 
  Country: None (occurrence: None)
  Receive Date: 20120618
  Receipt Date: 20120611
  Transmission Date: 20120825
  Serious: Yes (Hospitalization, Other)
  Sender: FDA-Public Use
  Company Number: CA-ROCHE-GNE321789

PATIENT
  Sex: Female

DRUGS (14)
  1. LUCENTIS [Suspect]
     Route: 050
     Dates: start: 20110519
  2. TRAZODONE HCL [Concomitant]
  3. NITROGLYCERIN [Concomitant]
  4. SPIRONOLACTONE [Concomitant]
  5. PLAVIX [Concomitant]
  6. MICARDIS [Concomitant]
  7. LUCENTIS [Suspect]
     Indication: AGE-RELATED MACULAR DEGENERATION
     Route: 050
     Dates: start: 20090101
  8. LUCENTIS [Suspect]
     Route: 050
     Dates: start: 20110701
  9. SENOKOT [Concomitant]
  10. NIFEDIPINE [Concomitant]
  11. DOXAZOSIN MESYLATE [Concomitant]
  12. ATORVASTATIN CALCIUM [Concomitant]
  13. ATENOLOL [Concomitant]
  14. VITAMIN D [Concomitant]

REACTIONS (5)
  - PULMONARY HAEMORRHAGE [None]
  - GASTROINTESTINAL HAEMORRHAGE [None]
  - CEREBROVASCULAR ACCIDENT [None]
  - PNEUMONIA [None]
  - LYMPHOMA [None]
